FAERS Safety Report 10235674 (Version 1)
Quarter: 2014Q1

REPORT INFORMATION
  Report Type: Spontaneous
  Country: US (occurrence: None)
  Receive Date: 20140306
  Receipt Date: 20140306
  Transmission Date: 20141002
  Serious: Yes (Other)
  Sender: FDA-Public Use
  Company Number: 163-21880-13041786

PATIENT
  Age: 66 Year
  Sex: Female
  Weight: 102.1 kg

DRUGS (20)
  1. REVLIMID (LENALIDOMIDE) (10 MILLIGRAM, CAPSULES) [Suspect]
     Indication: PLASMA CELL MYELOMA
     Route: 048
     Dates: start: 20100618
  2. CYMBALTA [Concomitant]
  3. OMEPRAZOLE (OMEPRAZOLE) [Concomitant]
  4. VITAMIN D3 (COLECALCIFEROL) [Concomitant]
  5. CALCIUM (CALCIUM) [Concomitant]
  6. FUROSEMIDE (FUROSEMIDE) [Concomitant]
  7. ACYCLOVIR (ACICLOVIR) (ACICLOVIR) [Concomitant]
  8. SUCRALFATE (SUCRALFATE) UNKNOWN [Concomitant]
  9. OMEGA 3 (FISH OIL) [Concomitant]
  10. LOSARTAN POTASSIUM (LOSARTTAN POTASSIUM) [Concomitant]
  11. CESTOR (ROSUVASTATIN) [Concomitant]
  12. METOPROLOL SUCCINATE (METOPROLOL SUCCINATE) [Concomitant]
  13. GLYBURIDE (GLIBENCLAMIDE) [Concomitant]
  14. ZOMETA (ZOLEDRONIC ACID) [Concomitant]
  15. FOLIC ACID (FOLIC ACID) [Concomitant]
  16. VITAMIN B12 (CYANOCOBALAMIN) [Concomitant]
  17. NEUPOGEN (FILGRASTIM) [Concomitant]
  18. ASPIRIN (ACETYLSALICYLIC ACID) [Concomitant]
  19. STOOL SOFTENER (DOCUSATE SODIUM) [Concomitant]
  20. AMLODIPINE BESYLATE (AMLODIPINE BESILATE) [Concomitant]

REACTIONS (3)
  - Urticaria [None]
  - Rash pruritic [None]
  - Seasonal allergy [None]
